FAERS Safety Report 6111548-6 (Version None)
Quarter: 2009Q1

REPORT INFORMATION
  Report Type: 
  Country: None (occurrence: None)
  Receive Date: 20090310
  Receipt Date: 20090310
  Transmission Date: 20090719
  Serious: Yes (Hospitalization)
  Sender: FDA-Public Use
  Company Number: None

PATIENT
  Sex: Male
  Weight: 97.0698 kg

DRUGS (1)
  1. ERBITUX [Suspect]
     Indication: LUNG NEOPLASM MALIGNANT
     Dosage: 540 MG QW IV DRIP
     Route: 041
     Dates: start: 20080818, end: 20090202

REACTIONS (8)
  - ATRIAL FLUTTER [None]
  - COUGH [None]
  - DYSPNOEA [None]
  - LEFT ATRIAL DILATATION [None]
  - LEFT VENTRICULAR HYPERTROPHY [None]
  - PULMONARY HYPERTENSION [None]
  - RHONCHI [None]
  - SUPRAVENTRICULAR TACHYCARDIA [None]
